FAERS Safety Report 17187519 (Version 2)
Quarter: 2020Q2

REPORT INFORMATION
  Report Type: Report from Study
  Country: US (occurrence: US)
  Receive Date: 20191220
  Receipt Date: 20200401
  Transmission Date: 20200713
  Serious: No
  Sender: FDA-Public Use
  Company Number: NVSC2019US028759

PATIENT
  Sex: Male

DRUGS (1)
  1. ENTRESTO [Suspect]
     Active Substance: SACUBITRIL\VALSARTAN
     Indication: CARDIAC FAILURE
     Dosage: 50 MG(24 MG SACUBITRIL/26 MG VALSARTAN), BID
     Route: 048
     Dates: start: 201909

REACTIONS (2)
  - Anxiety [Not Recovered/Not Resolved]
  - Product dose omission [Unknown]
